FAERS Safety Report 8000783 (Version 3)
Quarter: 2012Q4

REPORT INFORMATION
  Report Type: 
  Country: US (occurrence: US)
  Receive Date: 20110621
  Receipt Date: 20121120
  Transmission Date: 20130627
  Serious: No
  Sender: FDA-Public Use
  Company Number: US-ASTRAZENECA-2010SE50911

PATIENT
  Age: 75 Year
  Sex: Male

DRUGS (25)
  1. NEXIUM [Suspect]
     Route: 048
  2. PRILOSEC [Suspect]
     Route: 048
  3. PULMICORT FLEXHALER [Suspect]
     Route: 055
  4. TOPROL XL [Concomitant]
  5. TRAMADOL HCL [Concomitant]
     Indication: PAIN
  6. FERROUS SULFATE [Concomitant]
  7. ECOTRIN [Concomitant]
  8. CENTRUM [Concomitant]
  9. VITAMIN E [Concomitant]
  10. NIACIN [Concomitant]
  11. MEVACOR [Concomitant]
  12. XANAX [Concomitant]
  13. AMIODARON [Concomitant]
  14. ACEON [Concomitant]
  15. FUROSEMIDE [Concomitant]
     Indication: FLUID RETENTION
  16. FUROSEMIDE [Concomitant]
     Indication: BLOOD PRESSURE ABNORMAL
  17. SINGULAIR [Concomitant]
  18. LORATADINE [Concomitant]
  19. COMBIVENT [Concomitant]
  20. SPIRONOLACTONE [Concomitant]
  21. NITROGLYCERIN [Concomitant]
  22. NASACORT [Concomitant]
  23. DIGOXIN [Concomitant]
  24. ACETAMINOPHEN [Concomitant]
  25. LEVOTHYROXINE [Concomitant]

REACTIONS (4)
  - Peptic ulcer [Unknown]
  - Nasopharyngitis [Unknown]
  - Nasal congestion [Unknown]
  - Drug ineffective [Unknown]
